FAERS Safety Report 6031928-7 (Version None)
Quarter: 2008Q4

REPORT INFORMATION
  Report Type: 
  Country: None (occurrence: None)
  Receive Date: 20081224
  Receipt Date: 20080909
  Transmission Date: 20090506
  Serious: No
  Sender: FDA-Public Use
  Company Number: 2008PV036668

PATIENT
  Age: 57 Year
  Sex: Male

DRUGS (9)
  1. SYMLIN [Suspect]
     Indication: TYPE 2 DIABETES MELLITUS
     Dosage: 120 MCG; BID; SC
     Route: 058
     Dates: start: 20080825, end: 20080907
  2. SYMLIN [Suspect]
     Indication: TYPE 2 DIABETES MELLITUS
     Dosage: 60 MCG; TID; SC
     Route: 058
     Dates: start: 20080408, end: 20080812
  3. AVANDIA [Concomitant]
  4. GLUCOPHAGE [Concomitant]
  5. AMARYL [Concomitant]
  6. HUMALOG MIX 75/25 [Concomitant]
  7. NEXIUM [Concomitant]
  8. ASPIRIN [Concomitant]
  9. MULTI-VITAMIN [Concomitant]

REACTIONS (1)
  - DRUG HYPERSENSITIVITY [None]
